FAERS Safety Report 4821662-0 (Version None)
Quarter: 2005Q4

REPORT INFORMATION
  Report Type: 
  Country: None (occurrence: None)
  Receive Date: 20051103
  Receipt Date: 20051103
  Transmission Date: 20060501
  Serious: Yes (Life-Threatening, Hospitalization)
  Sender: FDA-Public Use
  Company Number: None

PATIENT
  Age: 58 Year
  Sex: Female
  Weight: 79.65 kg

DRUGS (1)
  1. BLEOMYCIN [Suspect]
     Indication: NEOPLASM
     Dates: start: 20050415, end: 20050428

REACTIONS (7)
  - COMPUTERISED TOMOGRAM ABNORMAL [None]
  - DYSPNOEA [None]
  - FIBROSIS [None]
  - HYPOXIA [None]
  - LUNG DISORDER [None]
  - OXYGEN SATURATION DECREASED [None]
  - PULMONARY FUNCTION TEST ABNORMAL [None]
